FAERS Safety Report 25167529 (Version 1)
Quarter: 2025Q2

REPORT INFORMATION
  Report Type: Spontaneous
  Country: CN (occurrence: CN)
  Receive Date: 20250407
  Receipt Date: 20250407
  Transmission Date: 20250716
  Serious: Yes (Other)
  Sender: BAYER
  Company Number: CN-BAYER-2025A044042

PATIENT
  Age: 58 Year
  Sex: Male

DRUGS (5)
  1. MOXIFLOXACIN [Suspect]
     Active Substance: MOXIFLOXACIN
     Indication: Pneumonia legionella
     Dosage: 0.4 G, QD
     Route: 041
     Dates: start: 20240901, end: 20240908
  2. MEROPENEM [Concomitant]
     Active Substance: MEROPENEM
     Indication: Pneumonia legionella
     Dosage: 0.5 G, TID INTRAVENOUS INFUSION
     Dates: start: 20240827, end: 20240831
  3. MEROPENEM [Concomitant]
     Active Substance: MEROPENEM
     Indication: Pneumonia legionella
     Dosage: 1.0 G, TID  INTRAVENOUS INFUSION
     Dates: start: 20240901
  4. TEICOPLANIN [Concomitant]
     Active Substance: TEICOPLANIN
     Indication: Pneumonia legionella
     Dosage: 0.4 G, BID
     Dates: start: 20240829
  5. TEICOPLANIN [Concomitant]
     Active Substance: TEICOPLANIN
     Indication: Pneumonia legionella
     Dosage: 0.4 G, QD
     Dates: end: 20240904

REACTIONS (2)
  - Pathogen resistance [None]
  - Drug ineffective [None]

NARRATIVE: CASE EVENT DATE: 20240901
